FAERS Safety Report 6444749-8 (Version None)
Quarter: 2009Q4

REPORT INFORMATION
  Report Type: 
  Country: None (occurrence: None)
  Receive Date: 20091118
  Receipt Date: 20091109
  Transmission Date: 20100525
  Serious: Yes (Hospitalization, Other)
  Sender: FDA-Public Use
  Company Number: B0586696A

PATIENT
  Sex: Male

DRUGS (7)
  1. REQUIP [Suspect]
     Route: 048
     Dates: start: 20010901, end: 20020801
  2. PERGOLIDE [Suspect]
     Route: 065
     Dates: start: 20020821, end: 20070101
  3. SIFROL [Suspect]
     Route: 065
     Dates: start: 20070101, end: 20080101
  4. MOTILIUM [Concomitant]
     Dosage: 1TAB THREE TIMES PER DAY
     Route: 065
     Dates: start: 20010915
  5. MODOPAR [Concomitant]
     Route: 065
     Dates: start: 20010101
  6. SINEMET [Concomitant]
     Route: 065
     Dates: start: 20020701
  7. ATHYMIL [Concomitant]
     Dosage: 20MG AT NIGHT
     Route: 065
     Dates: start: 20020701

REACTIONS (11)
  - DEPRESSED MOOD [None]
  - DEPRESSION [None]
  - FOOD CRAVING [None]
  - GENERAL PHYSICAL HEALTH DETERIORATION [None]
  - MALAISE [None]
  - NAUSEA [None]
  - ORTHOSTATIC HYPOTENSION [None]
  - PATHOLOGICAL GAMBLING [None]
  - SOCIAL AVOIDANT BEHAVIOUR [None]
  - SUICIDAL IDEATION [None]
  - VOMITING [None]
